FAERS Safety Report 7636749-7 (Version None)
Quarter: 2011Q3

REPORT INFORMATION
  Report Type: 
  Country: None (occurrence: None)
  Receive Date: 20110726
  Receipt Date: 20110718
  Transmission Date: 20111222
  Serious: Yes (Other)
  Sender: FDA-Public Use
  Company Number: US-ABBOTT-11P-163-0839966-00

PATIENT
  Sex: Female
  Weight: 69.916 kg

DRUGS (6)
  1. HUMIRA [Suspect]
     Dates: start: 20110701
  2. MERCAPTOPURINE [Concomitant]
     Indication: PRODUCT USED FOR UNKNOWN INDICATION
  3. HUMIRA [Suspect]
     Route: 058
     Dates: start: 20110501, end: 20110701
  4. HUMIRA [Suspect]
     Indication: COLITIS ULCERATIVE
     Dates: start: 20101201, end: 20110301
  5. CEPHALEXIN [Suspect]
     Indication: ANTIBIOTIC PROPHYLAXIS
     Dates: start: 20110701, end: 20110701
  6. VALTREX [Concomitant]
     Indication: PRODUCT USED FOR UNKNOWN INDICATION

REACTIONS (6)
  - PAIN IN EXTREMITY [None]
  - BREAST HAEMATOMA [None]
  - BREAST MASS [None]
  - ARTHRALGIA [None]
  - URTICARIA [None]
  - INCORRECT DOSE ADMINISTERED [None]
